FAERS Safety Report 14564522 (Version 5)
Quarter: 2018Q2

REPORT INFORMATION
  Report Type: Report from Study
  Country: US (occurrence: US)
  Receive Date: 20180222
  Receipt Date: 20180619
  Transmission Date: 20180711
  Serious: Yes (Death, Hospitalization)
  Sender: FDA-Public Use
  Company Number: US-EXELIXIS-XL18418012467

PATIENT
  Age: 41 Year
  Sex: Female
  Weight: 81.6 kg

DRUGS (10)
  1. LOVENOX [Concomitant]
     Active Substance: ENOXAPARIN SODIUM
  2. NYSTATIN. [Concomitant]
     Active Substance: NYSTATIN
  3. FENTANYL. [Concomitant]
     Active Substance: FENTANYL
  4. TRAMADOL. [Concomitant]
     Active Substance: TRAMADOL
  5. XL184 [Suspect]
     Active Substance: CABOZANTINIB
     Dosage: UNK
     Dates: start: 20180202, end: 20180204
  6. SENNA [Concomitant]
     Active Substance: SENNA LEAF\SENNOSIDES\SENNOSIDES A AND B
  7. BACTRIM [Concomitant]
     Active Substance: SULFAMETHOXAZOLE\TRIMETHOPRIM
  8. XL184 [Suspect]
     Active Substance: CABOZANTINIB
     Indication: BREAST CANCER
     Dosage: 40 MG, QD
     Route: 048
     Dates: start: 20180110, end: 20180131
  9. NIVOLUMAB [Suspect]
     Active Substance: NIVOLUMAB
     Indication: BREAST CANCER
     Dosage: 480 MG, Q4WEEKS
     Route: 042
     Dates: start: 20180110
  10. PREDNISONE. [Concomitant]
     Active Substance: PREDNISONE

REACTIONS (7)
  - Oedema [Not Recovered/Not Resolved]
  - Pain [Not Recovered/Not Resolved]
  - Death [Fatal]
  - Skin infection [Unknown]
  - Pleural effusion [Unknown]
  - Liver function test increased [Recovering/Resolving]
  - Dyspnoea [Not Recovered/Not Resolved]

NARRATIVE: CASE EVENT DATE: 20180213
